FAERS Safety Report 12876978 (Version 1)
Quarter: 2016Q4

REPORT INFORMATION
  Report Type: Spontaneous
  Country: JP (occurrence: JP)
  Receive Date: 20161024
  Receipt Date: 20161024
  Transmission Date: 20170207
  Serious: Yes (Hospitalization, Other)
  Sender: FDA-Public Use
  Company Number: JP-GLAXOSMITHKLINE-JP2016JPN152306

PATIENT
  Age: 91 Year
  Sex: Female

DRUGS (1)
  1. VALTREX [Suspect]
     Active Substance: VALACYCLOVIR HYDROCHLORIDE
     Indication: HERPES ZOSTER
     Dosage: 3000 MG, 1D
     Route: 048

REACTIONS (5)
  - Altered state of consciousness [Recovering/Resolving]
  - Toxic encephalopathy [Unknown]
  - Acute kidney injury [Recovered/Resolved]
  - Suicidal ideation [Unknown]
  - Decreased appetite [Unknown]
